FAERS Safety Report 12530109 (Version 3)
Quarter: 2016Q3

REPORT INFORMATION
  Report Type: Spontaneous
  Country: CA (occurrence: CA)
  Receive Date: 20160706
  Receipt Date: 20160819
  Transmission Date: 20161109
  Serious: Yes (Other)
  Sender: FDA-Public Use
  Company Number: CA-SA-2016SA120369

PATIENT
  Age: 69 Year
  Sex: Female

DRUGS (6)
  1. TOUJEO [Suspect]
     Active Substance: INSULIN GLARGINE
     Indication: TYPE 2 DIABETES MELLITUS
     Dosage: DOSE:10 UNIT(S)
     Route: 065
     Dates: start: 201603
  2. CALTRATE [Concomitant]
     Active Substance: CALCIUM CARBONATE
  3. ASPIRIN. [Concomitant]
     Active Substance: ASPIRIN
  4. SOLOSTAR [Concomitant]
     Active Substance: DEVICE
     Indication: TYPE 2 DIABETES MELLITUS
     Dates: start: 201603
  5. HYDROCHLOROTHIAZIDE. [Concomitant]
     Active Substance: HYDROCHLOROTHIAZIDE
  6. BISOPROLOL [Concomitant]
     Active Substance: BISOPROLOL

REACTIONS (7)
  - Sinus congestion [Not Recovered/Not Resolved]
  - Visual acuity reduced [Recovering/Resolving]
  - Dyspnoea exertional [Not Recovered/Not Resolved]
  - Papilloedema [Recovering/Resolving]
  - Vision blurred [Recovering/Resolving]
  - Condition aggravated [Not Recovered/Not Resolved]
  - Vision blurred [Recovering/Resolving]

NARRATIVE: CASE EVENT DATE: 20160401
